FAERS Safety Report 5286339-9 (Version None)
Quarter: 2007Q2

REPORT INFORMATION
  Report Type: 
  Country: None (occurrence: None)
  Receive Date: 20070404
  Receipt Date: 20070330
  Transmission Date: 20071010
  Serious: Yes (Other)
  Sender: FDA-Public Use
  Company Number: 2006UW21928

PATIENT
  Sex: Male
  Weight: 154.5 kg

DRUGS (7)
  1. SEROQUEL [Suspect]
     Indication: INSOMNIA
     Route: 048
     Dates: start: 20050101
  2. SEROQUEL [Suspect]
     Indication: FEELING OF RELAXATION
     Route: 048
     Dates: start: 20050101
  3. DEXATRIM [Concomitant]
     Indication: WEIGHT CONTROL
     Dates: start: 19950101, end: 20000101
  4. CLOZARIL [Concomitant]
  5. GEODON [Concomitant]
  6. RISPERDAL [Concomitant]
  7. OLANZAPINE [Concomitant]

REACTIONS (6)
  - BRAIN DAMAGE [None]
  - DIABETIC COMA [None]
  - FEELING OF RELAXATION [None]
  - HEMIPLEGIA [None]
  - HYPERGLYCAEMIA [None]
  - INSOMNIA [None]
